FAERS Safety Report 17344216 (Version 1)
Quarter: 2020Q1

REPORT INFORMATION
  Report Type: Spontaneous
  Country: IE (occurrence: IE)
  Receive Date: 20200129
  Receipt Date: 20200129
  Transmission Date: 20200409
  Serious: Yes (Other)
  Sender: FDA-Public Use
  Company Number: IE-MYLANLABS-2020M1010256

PATIENT
  Age: 39 Year
  Sex: Female

DRUGS (4)
  1. TAMOXIFEN [Suspect]
     Active Substance: TAMOXIFEN
     Indication: PRODUCT USED FOR UNKNOWN INDICATION
     Dosage: UNK
     Route: 065
  2. ZOLADEX [Suspect]
     Active Substance: GOSERELIN ACETATE
     Indication: PRODUCT USED FOR UNKNOWN INDICATION
     Dosage: UNK
     Route: 065
  3. RIBOCICLIB. [Suspect]
     Active Substance: RIBOCICLIB
     Dosage: 400 MILLIGRAM
     Route: 065
  4. RIBOCICLIB. [Suspect]
     Active Substance: RIBOCICLIB
     Indication: PRODUCT USED FOR UNKNOWN INDICATION
     Dosage: UNK
     Route: 065

REACTIONS (3)
  - Pyrexia [Unknown]
  - Cystitis [Unknown]
  - Febrile neutropenia [Recovered/Resolved]
